FAERS Safety Report 14184848 (Version 2)
Quarter: 2018Q2

REPORT INFORMATION
  Report Type: Spontaneous
  Country: US (occurrence: US)
  Receive Date: 20171114
  Receipt Date: 20180625
  Transmission Date: 20180711
  Serious: No
  Sender: FDA-Public Use
  Company Number: US-SHIRE-US201726302

PATIENT

DRUGS (1)
  1. XIIDRA [Suspect]
     Active Substance: LIFITEGRAST
     Indication: DRY EYE
     Dosage: UNK, 1X/DAY:QD
     Route: 047
     Dates: start: 2016

REACTIONS (5)
  - Drug ineffective [Unknown]
  - Instillation site pain [Unknown]
  - Instillation site dryness [Unknown]
  - Instillation site erythema [Unknown]
  - Instillation site rash [Unknown]
